FAERS Safety Report 7652838-5 (Version None)
Quarter: 2011Q3

REPORT INFORMATION
  Report Type: 
  Country: None (occurrence: None)
  Receive Date: 20110803
  Receipt Date: 20110728
  Transmission Date: 20111222
  Serious: No
  Sender: FDA-Public Use
  Company Number: US-JNJFOC-20110800681

PATIENT
  Sex: Female

DRUGS (5)
  1. ZYPREXA [Concomitant]
     Route: 048
  2. GEODON [Concomitant]
     Route: 048
  3. RISPERDAL [Suspect]
     Indication: PRODUCT USED FOR UNKNOWN INDICATION
     Route: 048
     Dates: end: 20110701
  4. INVEGA SUSTENNA [Suspect]
     Indication: PRODUCT USED FOR UNKNOWN INDICATION
     Route: 030
  5. INVEGA SUSTENNA [Suspect]
     Route: 030
     Dates: start: 20110701

REACTIONS (2)
  - DROOLING [None]
  - GENERAL PHYSICAL HEALTH DETERIORATION [None]
